FAERS Safety Report 8223376-6 (Version None)
Quarter: 2012Q1

REPORT INFORMATION
  Report Type: 
  Country: None (occurrence: None)
  Receive Date: 20120312
  Receipt Date: 20120301
  Transmission Date: 20120608
  Serious: Yes (Other)
  Sender: FDA-Public Use
  Company Number: WAES 1201USA00129

PATIENT
  Age: 69 Year
  Sex: Male

DRUGS (2)
  1. XALATAN [Concomitant]
  2. COSOPT [Suspect]
     Indication: GLAUCOMA
     Dosage: 1 DRPS/BID/OPHT
     Route: 047
     Dates: start: 20110509, end: 20110921

REACTIONS (1)
  - DYSPNOEA EXERTIONAL [None]
